FAERS Safety Report 23049779 (Version 1)
Quarter: 2023Q4

REPORT INFORMATION
  Report Type: Spontaneous
  Country: US (occurrence: None)
  Receive Date: 20231007
  Receipt Date: 20231007
  Transmission Date: 20240110
  Serious: Yes (Hospitalization, Other)
  Sender: FDA-Public Use
  Company Number: None

PATIENT
  Age: 31 Year
  Sex: Female
  Weight: 78.75 kg

DRUGS (3)
  1. KEPPRA [Suspect]
     Active Substance: LEVETIRACETAM
     Indication: Seizure
     Dosage: OTHER QUANTITY : 90 TABLET(S);?FREQUENCY : TWICE A DAY;?
     Route: 048
     Dates: start: 20200501
  2. KEPPRA [Concomitant]
     Active Substance: LEVETIRACETAM
  3. EXCEDRIN [Concomitant]
     Active Substance: ACETAMINOPHEN\ASPIRIN\CAFFEINE

REACTIONS (1)
  - Abnormal behaviour [None]

NARRATIVE: CASE EVENT DATE: 20231005
